FAERS Safety Report 13420877 (Version 2)
Quarter: 2018Q1

REPORT INFORMATION
  Report Type: Spontaneous
  Country: CA (occurrence: CA)
  Receive Date: 20170409
  Receipt Date: 20180202
  Transmission Date: 20180508
  Serious: Yes (Hospitalization, Other)
  Sender: FDA-Public Use
  Company Number: CA-009507513-1704CAN002457

PATIENT
  Age: 65 Year
  Sex: Male

DRUGS (14)
  1. PLAQUENIL [Concomitant]
     Active Substance: HYDROXYCHLOROQUINE SULFATE
  2. PANTOPRAZOLE [Concomitant]
     Active Substance: PANTOPRAZOLE
  3. LINEZOLID. [Concomitant]
     Active Substance: LINEZOLID
  4. CANCIDAS [Concomitant]
     Active Substance: CASPOFUNGIN ACETATE
  5. VITAMIN D [Concomitant]
     Active Substance: CHOLECALCIFEROL
  6. INVANZ [Suspect]
     Active Substance: ERTAPENEM SODIUM
     Indication: ABDOMINAL ABSCESS
     Dosage: 1 EVERY 1 DAY(S)
     Route: 042
  7. VANCOMYCIN [Concomitant]
     Active Substance: VANCOMYCIN
  8. LYRICA [Concomitant]
     Active Substance: PREGABALIN
  9. CRESTOR [Concomitant]
     Active Substance: ROSUVASTATIN CALCIUM
  10. RISEDRONATE SODIUM. [Concomitant]
     Active Substance: RISEDRONATE SODIUM
  11. ACTONEL [Concomitant]
     Active Substance: RISEDRONATE SODIUM
  12. ROSUVASTATIN. [Concomitant]
     Active Substance: ROSUVASTATIN
  13. PREDNISONE. [Concomitant]
     Active Substance: PREDNISONE
  14. D TABS [Concomitant]
     Dosage: 10000 UNIT

REACTIONS (8)
  - Delirium [Recovered/Resolved]
  - Disorientation [Recovered/Resolved]
  - Soliloquy [Recovered/Resolved]
  - Hallucination, visual [Recovered/Resolved]
  - Agitation [Recovered/Resolved]
  - Confusional state [Recovered/Resolved]
  - Altered state of consciousness [Recovered/Resolved]
  - Hallucination, auditory [Recovered/Resolved]

NARRATIVE: CASE EVENT DATE: 20170328
